FAERS Safety Report 7674783-1 (Version None)
Quarter: 2011Q3

REPORT INFORMATION
  Report Type: 
  Country: None (occurrence: None)
  Receive Date: 20110810
  Receipt Date: 20110804
  Transmission Date: 20111222
  Serious: Yes (Hospitalization)
  Sender: FDA-Public Use
  Company Number: JP-GLAXOSMITHKLINE-B0735817A

PATIENT
  Sex: Male

DRUGS (5)
  1. PROMACTA [Suspect]
     Indication: PRODUCT USED FOR UNKNOWN INDICATION
     Dosage: 12.5MG PER DAY
     Route: 048
  2. PROMACTA [Suspect]
     Dosage: 25MG PER DAY
     Route: 048
     Dates: start: 20110614
  3. WARFARIN [Concomitant]
     Dosage: 3MG PER DAY
     Route: 048
  4. FUROSEMIDE [Concomitant]
     Dosage: 20MG PER DAY
  5. ALLOPURINOL [Concomitant]
     Dosage: 100MG PER DAY
     Route: 048

REACTIONS (1)
  - ANAEMIA [None]
